FAERS Safety Report 18922676 (Version 1)
Quarter: 2021Q1

REPORT INFORMATION
  Report Type: Spontaneous
  Country: US (occurrence: US)
  Receive Date: 20210222
  Receipt Date: 20210222
  Transmission Date: 20210420
  Serious: Yes (Other)
  Sender: FDA-Public Use
  Company Number: None

PATIENT
  Age: 26 Year
  Sex: Male
  Weight: 104 kg

DRUGS (3)
  1. PALYNZIQ [Suspect]
     Active Substance: PEGVALIASE-PQPZ
     Indication: PHENYLKETONURIA
     Route: 058
     Dates: start: 20200807
  2. ZYRTEC (CETIRIZINE HYDROCHLORIDE) 10 MG DAILY. [Concomitant]
     Dates: start: 20200801
  3. PEPCID (FAMOTIDINE) 20 MG DAILY [Concomitant]
     Dates: start: 20200801

REACTIONS (5)
  - Throat tightness [None]
  - Injection site bruising [None]
  - Oropharyngeal pain [None]
  - Heart rate increased [None]
  - Dysphagia [None]

NARRATIVE: CASE EVENT DATE: 20210213
